FAERS Safety Report 7536560-1 (Version None)
Quarter: 2011Q2

REPORT INFORMATION
  Report Type: 
  Country: None (occurrence: None)
  Receive Date: 20110608
  Receipt Date: 20110608
  Transmission Date: 20111010
  Serious: Yes (Other)
  Sender: FDA-Public Use
  Company Number: None

PATIENT
  Age: 59 Year
  Sex: Female
  Weight: 111.1313 kg

DRUGS (1)
  1. CLOTRIMAZOLE AND BETAMETHASONE DIPROPIONATE [Suspect]
     Indication: FUNGAL SKIN INFECTION
     Dosage: AS NEEDED TOP
     Route: 061
     Dates: start: 20110412, end: 20110604

REACTIONS (2)
  - DRUG INTERACTION [None]
  - ATRIAL FIBRILLATION [None]
